FAERS Safety Report 17976574 (Version 6)
Quarter: 2020Q4

REPORT INFORMATION
  Report Type: Report from Study
  Country: US (occurrence: US)
  Receive Date: 20200703
  Receipt Date: 20201008
  Transmission Date: 20210113
  Serious: No
  Sender: FDA-Public Use
  Company Number: NVSC2020US184779

PATIENT
  Sex: Male

DRUGS (1)
  1. ENTRESTO [Suspect]
     Active Substance: SACUBITRIL\VALSARTAN
     Indication: CARDIAC FAILURE
     Dosage: 1 DF, BID (24/26 MG)
     Route: 048
     Dates: start: 20200406

REACTIONS (11)
  - Drug intolerance [Recovered/Resolved]
  - Dizziness [Unknown]
  - Fatigue [Unknown]
  - Nausea [Recovering/Resolving]
  - Vomiting [Recovering/Resolving]
  - Dyspnoea [Unknown]
  - Illness [Recovering/Resolving]
  - Weight decreased [Unknown]
  - Gait disturbance [Recovered/Resolved]
  - Chest pain [Not Recovered/Not Resolved]
  - Headache [Recovering/Resolving]
